FAERS Safety Report 14561635 (Version 47)
Quarter: 2022Q2

REPORT INFORMATION
  Report Type: Report from Study
  Country: DE (occurrence: DE)
  Receive Date: 20180222
  Receipt Date: 20220426
  Transmission Date: 20220721
  Serious: Yes (Hospitalization, Other)
  Sender: FDA-Public Use
  Company Number: DE-BRISTOL-MYERS SQUIBB COMPANY-BMS-2018-012361

PATIENT
  Age: 54 Year
  Sex: Male
  Weight: 119 kg

DRUGS (82)
  1. IPILIMUMAB [Suspect]
     Active Substance: IPILIMUMAB
     Indication: Malignant melanoma
     Dosage: 16.896 ABSENT 384 ABSENT 384 ABSENT, Q3WK?CUMULATIVE DOSE TO FIRST REACTION : 1134?DOSE: 384
     Dates: start: 20171102, end: 20171102
  2. IPILIMUMAB [Suspect]
     Active Substance: IPILIMUMAB
     Indication: Lung neoplasm malignant
     Dosage: 16.632 ABSENT 378 ABSENT 378 ABSENT, Q3WK?DOSE: 378
     Dates: start: 20171123, end: 20171123
  3. IPILIMUMAB [Suspect]
     Active Substance: IPILIMUMAB
     Dosage: 16.368 ABSENT 372 ABSENT 372 ABSENT, Q3WK?DOSE: 372
     Dates: start: 20171214, end: 20171214
  4. NIVOLUMAB [Suspect]
     Active Substance: NIVOLUMAB
     Indication: Malignant melanoma
     Dosage: 5.632 ABSENT 128 ABSENT 128 ABSENT, Q3WK?CUMULATIVE  DOSE TO FIRST REACTION : 378?DOSE : 128
     Dates: start: 20171102, end: 20171102
  5. NIVOLUMAB [Suspect]
     Active Substance: NIVOLUMAB
     Indication: Lung neoplasm malignant
     Dosage: 5.544 ABSENT 126 ABSENT 126 DOSAGE FORM, Q3WK?DOSE : 126
     Dates: start: 20171123, end: 20171123
  6. NIVOLUMAB [Suspect]
     Active Substance: NIVOLUMAB
     Dosage: 5.456 ABSENT 124 ABSENT 124 ABSENT, Q3WK?DOSE : 124
     Dates: start: 20171214, end: 20171214
  7. NIVOLUMAB [Suspect]
     Active Substance: NIVOLUMAB
     Dosage: 16.8 ABSENT 480 ABSENT 480 ABSENT, Q4WK?DOSE : 480
     Dates: start: 20180528, end: 20180528
  8. NIVOLUMAB [Suspect]
     Active Substance: NIVOLUMAB
     Dosage: 68.64 ABSENT 480 ABSENT 480 ABSENT, QWK?DOSE : 480
     Dates: start: 20180625
  9. NIVOLUMAB [Suspect]
     Active Substance: NIVOLUMAB
     Dosage: 16.8 ABSENT 480 ABSENT 480 ABSENT, Q4WK?DOSE : 480
     Route: 065
     Dates: start: 20180806, end: 20180806
  10. NIVOLUMAB [Suspect]
     Active Substance: NIVOLUMAB
     Dosage: 1 DOSAGE FORM, 480 (UNITS NOT SPECIFIED) Q4WK?DOSE : 1
     Dates: start: 20190402, end: 20190402
  11. NIVOLUMAB [Suspect]
     Active Substance: NIVOLUMAB
     Dosage: 1 DOSAGE FORM 480 (UNIT WAS NOT SPECIFIED)?DOSE : 1
     Dates: start: 20190430, end: 20190430
  12. NIVOLUMAB [Suspect]
     Active Substance: NIVOLUMAB
     Dosage: 1 DOSAGE FORM, Q4WK?DOSE : 1
     Dates: start: 20190528, end: 20190528
  13. NIVOLUMAB [Suspect]
     Active Substance: NIVOLUMAB
     Dosage: 1 DOSAGE FORM 480 (UNIT UNSPECIFIED), Q4WK?DOSE : 1
     Dates: start: 20190702, end: 20190702
  14. NIVOLUMAB [Suspect]
     Active Substance: NIVOLUMAB
     Dosage: 16.8 ABSENT 480 ABSENT 1 DOSAGE FORM 480 (UNIT WAS NOT SPECIFIED)?DOSE : 480
     Dates: start: 20190730, end: 20190730
  15. NIVOLUMAB [Suspect]
     Active Substance: NIVOLUMAB
     Dosage: 16.8 ABSENT 480 ABSENT 1 DOSAGE FORM 480 (UNIT WAS NOT SPECIFIED)?DOSE : 480
     Dates: start: 20190827, end: 20190827
  16. NIVOLUMAB [Suspect]
     Active Substance: NIVOLUMAB
     Dosage: 16.8 ABSENT 480 ABSENT 480 ABSENT, Q4WK?DOSE : 480
     Dates: start: 20190924, end: 20190924
  17. NIVOLUMAB [Suspect]
     Active Substance: NIVOLUMAB
     Dosage: 16.8 ABSENT 480 ABSENT 480 ABSENT, Q4WK?DOSE : 480
     Dates: start: 20191125, end: 20191125
  18. NIVOLUMAB [Suspect]
     Active Substance: NIVOLUMAB
     Dosage: 16.8 ABSENT 480 ABSENT 480 ABSENT, Q4WK?DOSE : 480
     Dates: start: 20191223, end: 20191223
  19. NIVOLUMAB [Suspect]
     Active Substance: NIVOLUMAB
     Dosage: 4.576 ABSENT 104 ABSENT 104 ABSENT, Q3WK?DOSE : 104
     Dates: start: 20200304, end: 20200304
  20. NIVOLUMAB [Suspect]
     Active Substance: NIVOLUMAB
     Dosage: 4.576 ABSENT 104 ABSENT 104 ABSENT, Q3WK?DOSE : 104
     Dates: start: 20200331, end: 20200331
  21. NIVOLUMAB [Suspect]
     Active Substance: NIVOLUMAB
     Dosage: 4.18 ABSENT 95 ABSENT 95 ABSENT, Q3WK?DOSE : 95
     Dates: start: 20200422, end: 20200422
  22. NIVOLUMAB [Suspect]
     Active Substance: NIVOLUMAB
     Dosage: 95 UNK, Q4WK?DOSE : 95
     Dates: start: 20200511, end: 20200511
  23. NIVOLUMAB [Suspect]
     Active Substance: NIVOLUMAB
     Dosage: 16.8 ABSENT 480 ABSENT 480 ABSENT, Q4WK?DOSE : 480
     Dates: start: 20200722, end: 20200722
  24. NIVOLUMAB [Suspect]
     Active Substance: NIVOLUMAB
     Dosage: 16.8 ABSENT 480 ABSENT 480 ABSENT, Q4WK?DOSE : 480
     Dates: start: 20200818, end: 20200818
  25. NIVOLUMAB [Suspect]
     Active Substance: NIVOLUMAB
     Dosage: 16.8 ABSENT 480 ABSENT 480 ABSENT, Q4WK?DOSE : 480
     Dates: start: 20200916, end: 20200916
  26. NIVOLUMAB [Suspect]
     Active Substance: NIVOLUMAB
     Dosage: 16.8 ABSENT 480 ABSENT 480 ABSENT, Q4WK?DOSE : 480
     Dates: start: 20201014, end: 20201014
  27. NIVOLUMAB [Suspect]
     Active Substance: NIVOLUMAB
     Dosage: 16.8 ABSENT 480 ABSENT 480 ABSENT, Q4WK?DOSE : 480
     Dates: start: 20201111, end: 20201111
  28. NIVOLUMAB [Suspect]
     Active Substance: NIVOLUMAB
     Dosage: 16.8 ABSENT 480 ABSENT 480 UNK, Q4WK?DOSE : 480
     Dates: start: 20201208, end: 20201208
  29. NIVOLUMAB [Suspect]
     Active Substance: NIVOLUMAB
     Dosage: DOSE : 480
     Dates: start: 20180903, end: 20180903
  30. NIVOLUMAB [Suspect]
     Active Substance: NIVOLUMAB
     Dosage: DOSE : 480
     Dates: start: 20181008, end: 20181008
  31. NIVOLUMAB [Suspect]
     Active Substance: NIVOLUMAB
     Dosage: DOSE : 480
     Dates: start: 20181105, end: 20181105
  32. NIVOLUMAB [Suspect]
     Active Substance: NIVOLUMAB
     Dosage: DOSE : 480
     Dates: start: 20181203, end: 20181203
  33. NIVOLUMAB [Suspect]
     Active Substance: NIVOLUMAB
     Dosage: DOSE : 480
     Dates: start: 20190107, end: 20190107
  34. NIVOLUMAB [Suspect]
     Active Substance: NIVOLUMAB
     Dosage: DOSE : 480
     Dates: start: 20190205, end: 20190205
  35. NIVOLUMAB [Suspect]
     Active Substance: NIVOLUMAB
     Dosage: DOSE : 480
     Dates: start: 20190305, end: 20190305
  36. NIVOLUMAB [Suspect]
     Active Substance: NIVOLUMAB
     Dosage: DOSE : 480
     Dates: start: 20210105, end: 20210105
  37. NIVOLUMAB [Suspect]
     Active Substance: NIVOLUMAB
     Dosage: DOSE : 480
     Dates: start: 20210412, end: 20210412
  38. NIVOLUMAB [Suspect]
     Active Substance: NIVOLUMAB
     Dosage: DOSE : 480
     Dates: start: 20210510, end: 20210510
  39. NIVOLUMAB [Suspect]
     Active Substance: NIVOLUMAB
     Dosage: DOSE : 480
     Dates: start: 20210615, end: 20210615
  40. NIVOLUMAB [Suspect]
     Active Substance: NIVOLUMAB
     Dosage: DOSE : 480
     Dates: start: 20210720, end: 20210720
  41. NIVOLUMAB [Suspect]
     Active Substance: NIVOLUMAB
     Dosage: DOSE : 480
     Dates: start: 20210818, end: 20210818
  42. NIVOLUMAB [Suspect]
     Active Substance: NIVOLUMAB
     Dosage: DOSE : 480
     Dates: start: 20210927, end: 20210927
  43. NIVOLUMAB [Suspect]
     Active Substance: NIVOLUMAB
     Dosage: DOSE : 480
     Dates: start: 20211026, end: 20211026
  44. NIVOLUMAB\RELATLIMAB-RMBW [Suspect]
     Active Substance: NIVOLUMAB\RELATLIMAB-RMBW
     Indication: Lung neoplasm malignant
     Dosage: 5.544 ABSENT 126 ABSENT 126 DOSAGE FORM, Q3WK?DOSE : 126
     Dates: start: 20171123, end: 20171123
  45. NIVOLUMAB\RELATLIMAB-RMBW [Suspect]
     Active Substance: NIVOLUMAB\RELATLIMAB-RMBW
     Dosage: 5.456 ABSENT 124 ABSENT 124 ABSENT, Q3WK?DOSE : 124
     Dates: start: 20171214, end: 20171214
  46. NIVOLUMAB\RELATLIMAB-RMBW [Suspect]
     Active Substance: NIVOLUMAB\RELATLIMAB-RMBW
     Dosage: 16.8 ABSENT 480 ABSENT 480 ABSENT, Q4WK?DOSE : 480
     Dates: start: 20180528, end: 20180528
  47. NIVOLUMAB\RELATLIMAB-RMBW [Suspect]
     Active Substance: NIVOLUMAB\RELATLIMAB-RMBW
     Dosage: 68.64 ABSENT 480 ABSENT 480 ABSENT, QWK?DOSE : 480
     Dates: start: 20180625
  48. NIVOLUMAB\RELATLIMAB-RMBW [Suspect]
     Active Substance: NIVOLUMAB\RELATLIMAB-RMBW
     Dosage: 16.8 ABSENT 480 ABSENT 480 ABSENT, Q4WK?DOSE : 480
     Route: 065
     Dates: start: 20180806, end: 20180806
  49. NIVOLUMAB\RELATLIMAB-RMBW [Suspect]
     Active Substance: NIVOLUMAB\RELATLIMAB-RMBW
     Dosage: 1 DOSAGE FORM, 480 (UNITS NOT SPECIFIED) Q4WK?DOSE : 1
     Dates: start: 20190402, end: 20190402
  50. NIVOLUMAB\RELATLIMAB-RMBW [Suspect]
     Active Substance: NIVOLUMAB\RELATLIMAB-RMBW
     Dosage: 1 DOSAGE FORM 480 (UNIT WAS NOT SPECIFIED)?DOSE : 1
     Dates: start: 20190430, end: 20190430
  51. NIVOLUMAB\RELATLIMAB-RMBW [Suspect]
     Active Substance: NIVOLUMAB\RELATLIMAB-RMBW
     Dosage: 1 DOSAGE FORM, Q4WK?DOSE : 1
     Dates: start: 20190528, end: 20190528
  52. NIVOLUMAB\RELATLIMAB-RMBW [Suspect]
     Active Substance: NIVOLUMAB\RELATLIMAB-RMBW
     Dosage: 1 DOSAGE FORM 480 (UNIT UNSPECIFIED), Q4WK?DOSE : 1
     Dates: start: 20190702, end: 20190702
  53. NIVOLUMAB\RELATLIMAB-RMBW [Suspect]
     Active Substance: NIVOLUMAB\RELATLIMAB-RMBW
     Dosage: 16.8 ABSENT 480 ABSENT 1 DOSAGE FORM 480 (UNIT WAS NOT SPECIFIED)?DOSE : 480
     Dates: start: 20190730, end: 20190730
  54. NIVOLUMAB\RELATLIMAB-RMBW [Suspect]
     Active Substance: NIVOLUMAB\RELATLIMAB-RMBW
     Dosage: 16.8 ABSENT 480 ABSENT 1 DOSAGE FORM 480 (UNIT WAS NOT SPECIFIED)?DOSE : 480
     Dates: start: 20190827, end: 20190827
  55. NIVOLUMAB\RELATLIMAB-RMBW [Suspect]
     Active Substance: NIVOLUMAB\RELATLIMAB-RMBW
     Dosage: 16.8 ABSENT 480 ABSENT 480 ABSENT, Q4WK?DOSE : 480
     Dates: start: 20190924, end: 20190924
  56. NIVOLUMAB\RELATLIMAB-RMBW [Suspect]
     Active Substance: NIVOLUMAB\RELATLIMAB-RMBW
     Dosage: 16.8 ABSENT 480 ABSENT 480 ABSENT, Q4WK?DOSE : 480
     Dates: start: 20191125, end: 20191125
  57. NIVOLUMAB\RELATLIMAB-RMBW [Suspect]
     Active Substance: NIVOLUMAB\RELATLIMAB-RMBW
     Dosage: 16.8 ABSENT 480 ABSENT 480 ABSENT, Q4WK?DOSE : 480
     Dates: start: 20191223, end: 20191223
  58. NIVOLUMAB\RELATLIMAB-RMBW [Suspect]
     Active Substance: NIVOLUMAB\RELATLIMAB-RMBW
     Dosage: 4.576 ABSENT 104 ABSENT 104 ABSENT, Q3WK?DOSE : 104
     Dates: start: 20200304, end: 20200304
  59. NIVOLUMAB\RELATLIMAB-RMBW [Suspect]
     Active Substance: NIVOLUMAB\RELATLIMAB-RMBW
     Dosage: 4.576 ABSENT 104 ABSENT 104 ABSENT, Q3WK?DOSE : 104
     Dates: start: 20200331, end: 20200331
  60. NIVOLUMAB\RELATLIMAB-RMBW [Suspect]
     Active Substance: NIVOLUMAB\RELATLIMAB-RMBW
     Dosage: 4.18 ABSENT 95 ABSENT 95 ABSENT, Q3WK?DOSE : 95
     Dates: start: 20200422, end: 20200422
  61. NIVOLUMAB\RELATLIMAB-RMBW [Suspect]
     Active Substance: NIVOLUMAB\RELATLIMAB-RMBW
     Dosage: 95 UNK, Q4WK?DOSE : 95
     Dates: start: 20200511, end: 20200511
  62. NIVOLUMAB\RELATLIMAB-RMBW [Suspect]
     Active Substance: NIVOLUMAB\RELATLIMAB-RMBW
     Dosage: 16.8 ABSENT 480 ABSENT 480 ABSENT, Q4WK?DOSE : 480
     Dates: start: 20200722, end: 20200722
  63. NIVOLUMAB\RELATLIMAB-RMBW [Suspect]
     Active Substance: NIVOLUMAB\RELATLIMAB-RMBW
     Dosage: 16.8 ABSENT 480 ABSENT 480 ABSENT, Q4WK?DOSE : 480
     Dates: start: 20200818, end: 20200818
  64. NIVOLUMAB\RELATLIMAB-RMBW [Suspect]
     Active Substance: NIVOLUMAB\RELATLIMAB-RMBW
     Dosage: 16.8 ABSENT 480 ABSENT 480 ABSENT, Q4WK?DOSE : 480
     Dates: start: 20200916, end: 20200916
  65. NIVOLUMAB\RELATLIMAB-RMBW [Suspect]
     Active Substance: NIVOLUMAB\RELATLIMAB-RMBW
     Dosage: 16.8 ABSENT 480 ABSENT 480 ABSENT, Q4WK?DOSE : 480
     Dates: start: 20201014, end: 20201014
  66. NIVOLUMAB\RELATLIMAB-RMBW [Suspect]
     Active Substance: NIVOLUMAB\RELATLIMAB-RMBW
     Dosage: 16.8 ABSENT 480 ABSENT 480 ABSENT, Q4WK?DOSE : 480
     Dates: start: 20201111, end: 20201111
  67. NIVOLUMAB\RELATLIMAB-RMBW [Suspect]
     Active Substance: NIVOLUMAB\RELATLIMAB-RMBW
     Dosage: 16.8 ABSENT 480 ABSENT 480 UNK, Q4WK?DOSE : 480
     Dates: start: 20201208, end: 20201208
  68. NIVOLUMAB\RELATLIMAB-RMBW [Suspect]
     Active Substance: NIVOLUMAB\RELATLIMAB-RMBW
     Dosage: DOSE : 480
     Dates: start: 20180903, end: 20180903
  69. NIVOLUMAB\RELATLIMAB-RMBW [Suspect]
     Active Substance: NIVOLUMAB\RELATLIMAB-RMBW
     Dosage: DOSE : 480
     Dates: start: 20181008, end: 20181008
  70. NIVOLUMAB\RELATLIMAB-RMBW [Suspect]
     Active Substance: NIVOLUMAB\RELATLIMAB-RMBW
     Dosage: DOSE : 480
     Dates: start: 20181105, end: 20181105
  71. NIVOLUMAB\RELATLIMAB-RMBW [Suspect]
     Active Substance: NIVOLUMAB\RELATLIMAB-RMBW
     Dosage: DOSE : 480
     Dates: start: 20181203, end: 20181203
  72. NIVOLUMAB\RELATLIMAB-RMBW [Suspect]
     Active Substance: NIVOLUMAB\RELATLIMAB-RMBW
     Dosage: DOSE : 480
     Dates: start: 20190107, end: 20190107
  73. NIVOLUMAB\RELATLIMAB-RMBW [Suspect]
     Active Substance: NIVOLUMAB\RELATLIMAB-RMBW
     Dosage: DOSE : 480
     Dates: start: 20190205, end: 20190205
  74. NIVOLUMAB\RELATLIMAB-RMBW [Suspect]
     Active Substance: NIVOLUMAB\RELATLIMAB-RMBW
     Dosage: DOSE : 480
     Dates: start: 20190305, end: 20190305
  75. NIVOLUMAB\RELATLIMAB-RMBW [Suspect]
     Active Substance: NIVOLUMAB\RELATLIMAB-RMBW
     Dosage: DOSE : 480
     Dates: start: 20210105, end: 20210105
  76. NIVOLUMAB\RELATLIMAB-RMBW [Suspect]
     Active Substance: NIVOLUMAB\RELATLIMAB-RMBW
     Dosage: DOSE : 480
     Dates: start: 20210412, end: 20210412
  77. NIVOLUMAB\RELATLIMAB-RMBW [Suspect]
     Active Substance: NIVOLUMAB\RELATLIMAB-RMBW
     Dosage: DOSE : 480
     Dates: start: 20210510, end: 20210510
  78. NIVOLUMAB\RELATLIMAB-RMBW [Suspect]
     Active Substance: NIVOLUMAB\RELATLIMAB-RMBW
     Dosage: DOSE : 480
     Dates: start: 20210615, end: 20210615
  79. NIVOLUMAB\RELATLIMAB-RMBW [Suspect]
     Active Substance: NIVOLUMAB\RELATLIMAB-RMBW
     Dosage: DOSE : 480
     Dates: start: 20210720, end: 20210720
  80. NIVOLUMAB\RELATLIMAB-RMBW [Suspect]
     Active Substance: NIVOLUMAB\RELATLIMAB-RMBW
     Dosage: DOSE : 480
     Dates: start: 20210818, end: 20210818
  81. NIVOLUMAB\RELATLIMAB-RMBW [Suspect]
     Active Substance: NIVOLUMAB\RELATLIMAB-RMBW
     Dosage: DOSE : 480
     Dates: start: 20210927, end: 20210927
  82. NIVOLUMAB\RELATLIMAB-RMBW [Suspect]
     Active Substance: NIVOLUMAB\RELATLIMAB-RMBW
     Dosage: DOSE : 480
     Dates: start: 20211026, end: 20211026

REACTIONS (18)
  - Erysipelas [Unknown]
  - Pneumonitis [Recovered/Resolved]
  - Adrenal insufficiency [Unknown]
  - Brain oedema [Unknown]
  - General physical health deterioration [Unknown]
  - Metastatic malignant melanoma [Unknown]
  - Metastases to lymph nodes [Unknown]
  - Metastases to central nervous system [Unknown]
  - Diarrhoea [Unknown]
  - Radiation skin injury [Unknown]
  - Cutis laxa [Unknown]
  - Muscle spasms [Unknown]
  - Musculoskeletal stiffness [Unknown]
  - Nausea [Unknown]
  - Ear discomfort [Unknown]
  - Fatigue [Unknown]
  - Dizziness [Unknown]
  - Restlessness [Unknown]

NARRATIVE: CASE EVENT DATE: 20171207
